FAERS Safety Report 7234549-3 (Version None)
Quarter: 2011Q1

REPORT INFORMATION
  Report Type: 
  Country: None (occurrence: None)
  Receive Date: 20110119
  Receipt Date: 20110112
  Transmission Date: 20110831
  Serious: Yes (Other)
  Sender: FDA-Public Use
  Company Number: NL-AMGEN-NLDSP2011002847

PATIENT

DRUGS (24)
  1. METHOTREXATE [Concomitant]
     Dosage: 1 DF, WEEKLY
  2. FLUIMICIL [Concomitant]
  3. AZITHROMYCIN [Concomitant]
     Dosage: 1 DF, 2X/WEEK
  4. MORPHINE [Concomitant]
     Dosage: 2 DF, 2X/DAY
  5. URISPAS [Concomitant]
     Dosage: 1 DF, 2X/DAY
  6. PERSANTIN [Concomitant]
     Dosage: 1 DF, 2X/DAY
  7. OMEPRAZOLE [Concomitant]
     Dosage: 1 DF, 2X/DAY
  8. EZETIMIBE/SIMVASTATIN [Concomitant]
     Dosage: 1 DF, 1X/DAY
  9. MARCOUMAR [Concomitant]
  10. CODEINE PHOSPHATE AND ACETAMINOPHEN [Concomitant]
     Dosage: 2 DF, 3X/DAY
  11. CALCICHEW [Concomitant]
     Dosage: 1 DF, 1X/DAY
  12. FUROSEMIDE [Concomitant]
     Dosage: 1 DF, 1X/DAY
  13. HUMALOG [Concomitant]
  14. FOLIC ACID [Concomitant]
  15. GRANISETRON HCL [Concomitant]
  16. DURAGESIC-100 [Concomitant]
  17. ORGAMETRIL [Concomitant]
     Dosage: 2 DF, 1X/DAY
  18. PULMICORT [Concomitant]
     Dosage: 1 DF, 2X/DAY
  19. PROMETAZIN [Concomitant]
  20. COMBIVENT [Concomitant]
  21. FLUTICASONE PROPIONATE [Concomitant]
  22. ENBREL [Suspect]
     Indication: RHEUMATOID ARTHRITIS
     Dosage: 50 MG, WEEKLY
     Dates: start: 20101224
  23. PREDNISOLONE [Concomitant]
     Dosage: 5 MG, 3X/DAY
  24. TELFAST [Concomitant]

REACTIONS (4)
  - BLOOD GLUCOSE INCREASED [None]
  - VISION BLURRED [None]
  - HEMIPARESIS [None]
  - EPISTAXIS [None]
